FAERS Safety Report 11936180 (Version 3)
Quarter: 2017Q1

REPORT INFORMATION
  Report Type: Report from Study
  Country: US (occurrence: US)
  Receive Date: 20160121
  Receipt Date: 20170126
  Transmission Date: 20170428
  Serious: No
  Sender: FDA-Public Use
  Company Number: US-AMGEN-USASL2015110752

PATIENT
  Age: 66 Year
  Sex: Female

DRUGS (4)
  1. POMALYST [Suspect]
     Active Substance: POMALIDOMIDE
     Indication: PRODUCT USED FOR UNKNOWN INDICATION
     Dosage: UNK
     Route: 065
     Dates: start: 20160620
  2. KYPROLIS [Suspect]
     Active Substance: CARFILZOMIB
     Dosage: UNK, TWO DAYS Q 21 DAYS
     Route: 065
  3. KYPROLIS [Suspect]
     Active Substance: CARFILZOMIB
     Dosage: UNK, 2 TIMES/WK EVERY OTHER WEEK
     Route: 065
  4. KYPROLIS [Suspect]
     Active Substance: CARFILZOMIB
     Indication: PRODUCT USED FOR UNKNOWN INDICATION
     Dosage: UNK UNK, 2 TIMES/WK
     Route: 042

REACTIONS (18)
  - Decreased appetite [Unknown]
  - Tension headache [Unknown]
  - Injection site mass [Recovering/Resolving]
  - Gait disturbance [Unknown]
  - Abdominal distension [Recovered/Resolved]
  - Walking aid user [Unknown]
  - Off label use [Unknown]
  - Mobility decreased [Unknown]
  - Hypersensitivity [Not Recovered/Not Resolved]
  - Somnolence [Not Recovered/Not Resolved]
  - Neuropathy peripheral [Unknown]
  - Laboratory test abnormal [Unknown]
  - Joint swelling [Recovering/Resolving]
  - Pruritus [Unknown]
  - Feeling abnormal [Unknown]
  - Malaise [Not Recovered/Not Resolved]
  - Vein disorder [Unknown]
  - Musculoskeletal chest pain [Unknown]

NARRATIVE: CASE EVENT DATE: 201510
